FAERS Safety Report 12425823 (Version 1)
Quarter: 2016Q2

REPORT INFORMATION
  Report Type: Spontaneous
  Country: US (occurrence: US)
  Receive Date: 20160601
  Receipt Date: 20160601
  Transmission Date: 20160815
  Serious: Yes (Hospitalization)
  Sender: FDA-Public Use
  Company Number: US-LUNDBECK-DKLU2014596

PATIENT
  Age: 1 Year

DRUGS (2)
  1. SABRIL [Suspect]
     Active Substance: VIGABATRIN
     Indication: INFANTILE SPASMS
     Route: 065
     Dates: start: 20150604
  2. SABRIL [Suspect]
     Active Substance: VIGABATRIN
     Route: 065
     Dates: start: 20160226

REACTIONS (4)
  - Catheter site infection [Unknown]
  - Nephrolithiasis [Unknown]
  - Urinary sediment present [Unknown]
  - Seizure [Unknown]

NARRATIVE: CASE EVENT DATE: 20150923
